FAERS Safety Report 10685213 (Version 1)
Quarter: 2014Q4

REPORT INFORMATION
  Report Type: Spontaneous
  Country: US (occurrence: None)
  Receive Date: 20141230
  Receipt Date: 20141230
  Transmission Date: 20150529
  Serious: Yes (Other)
  Sender: FDA-Public Use
  Company Number: None

PATIENT
  Age: 77 Year
  Sex: Male

DRUGS (1)
  1. SUTENT [Suspect]
     Active Substance: SUNITINIB MALATE
     Indication: RENAL CANCER
     Route: 048
     Dates: start: 20141216, end: 20141226

REACTIONS (4)
  - Dysgeusia [None]
  - Bedridden [None]
  - Asthenia [None]
  - Retching [None]

NARRATIVE: CASE EVENT DATE: 20141225
